FAERS Safety Report 9177556 (Version 2)
Quarter: 2013Q2

REPORT INFORMATION
  Report Type: Spontaneous
  Country: CA (occurrence: CA)
  Receive Date: 20130321
  Receipt Date: 20130430
  Transmission Date: 20140414
  Serious: Yes (Other)
  Sender: FDA-Public Use
  Company Number: CA-PFIZER INC-2013088563

PATIENT
  Sex: Female
  Weight: 58 kg

DRUGS (1)
  1. ZARONTIN [Suspect]
     Indication: EPILEPSY
     Dosage: 250 (UNITS UNSPECIFIED), 3X/DAY
     Route: 048
     Dates: start: 201106, end: 201107

REACTIONS (2)
  - Angioedema [Recovered/Resolved]
  - Hypersensitivity [Recovered/Resolved]
